FAERS Safety Report 20063353 (Version 1)
Quarter: 2021Q4

REPORT INFORMATION
  Report Type: Spontaneous
  Country: MX (occurrence: MX)
  Receive Date: 20211112
  Receipt Date: 20211112
  Transmission Date: 20220303
  Serious: Yes (Other)
  Sender: FDA-Public Use
  Company Number: MX-UCBSA-2021053127

PATIENT
  Age: 28 Year
  Sex: Male

DRUGS (4)
  1. KEPPRA [Suspect]
     Active Substance: LEVETIRACETAM
     Indication: Encephalitis viral
     Dosage: UNK
  2. ACYCLOVIR [Concomitant]
     Active Substance: ACYCLOVIR
     Indication: Encephalitis viral
     Dosage: UNK
  3. METHYLPREDNISOLONE [Concomitant]
     Active Substance: METHYLPREDNISOLONE
     Indication: Encephalitis autoimmune
     Dosage: 0.4 G/KG/DAY
  4. IMMUNE GLOBULIN NOS [Concomitant]
     Active Substance: IMMUNE GLOBULIN NOS
     Indication: Encephalitis autoimmune
     Dosage: UNK

REACTIONS (7)
  - Status epilepticus [Unknown]
  - Encephalitis autoimmune [Unknown]
  - Endotracheal intubation [Unknown]
  - Mood altered [Unknown]
  - Irritability [Unknown]
  - Agitation [Unknown]
  - Product use in unapproved indication [Unknown]
